FAERS Safety Report 14283898 (Version 1)
Quarter: 2017Q4

REPORT INFORMATION
  Report Type: Spontaneous
  Country: US (occurrence: US)
  Receive Date: 20171214
  Receipt Date: 20171214
  Transmission Date: 20180321
  Serious: No
  Sender: FDA-Public Use
  Company Number: US-ELI_LILLY_AND_COMPANY-US201712001060

PATIENT
  Sex: Female

DRUGS (7)
  1. POTASSIUM [Suspect]
     Active Substance: POTASSIUM
     Indication: SWELLING
  2. POTASSIUM [Suspect]
     Active Substance: POTASSIUM
     Indication: DIAPHRAGMATIC SPASM
     Dosage: UNK, UNKNOWN
     Route: 065
  3. LEVEMIR [Suspect]
     Active Substance: INSULIN DETEMIR
     Indication: PRODUCT USED FOR UNKNOWN INDICATION
     Dosage: 75 U, UNKNOWN
     Route: 065
  4. POTASSIUM [Suspect]
     Active Substance: POTASSIUM
     Indication: MUSCLE SPASMS
  5. VICTOZA [Suspect]
     Active Substance: LIRAGLUTIDE
     Indication: PRODUCT USED FOR UNKNOWN INDICATION
     Dosage: 1.2 MG, UNKNOWN
     Route: 065
  6. HUMALOG [Suspect]
     Active Substance: INSULIN LISPRO
     Indication: PRODUCT USED FOR UNKNOWN INDICATION
     Dosage: UNK, TID
     Route: 065
  7. LASIX [Suspect]
     Active Substance: FUROSEMIDE
     Indication: SWELLING
     Dosage: UNK, UNKNOWN
     Route: 065

REACTIONS (10)
  - Amenorrhoea [Unknown]
  - Musculoskeletal pain [Unknown]
  - Blood potassium decreased [Unknown]
  - Blood glucose increased [Unknown]
  - Diaphragmatic spasm [Unknown]
  - Sleep disorder [Unknown]
  - Swelling [Unknown]
  - Hormone level abnormal [Unknown]
  - Muscle spasms [Unknown]
  - Blood glucose decreased [Unknown]
